FAERS Safety Report 9742643 (Version 1)
Quarter: 2013Q4

REPORT INFORMATION
  Report Type: Spontaneous
  Country: US (occurrence: US)
  Receive Date: 20131210
  Receipt Date: 20131210
  Transmission Date: 20140711
  Serious: No
  Sender: FDA-Public Use
  Company Number: US-GILEAD-2009-0025220

PATIENT
  Sex: Female
  Weight: 77.11 kg

DRUGS (19)
  1. LETAIRIS [Suspect]
     Indication: PULMONARY ARTERIAL HYPERTENSION
     Route: 048
     Dates: start: 20091007
  2. FIBERCON [Concomitant]
  3. CENTRUM SILVER [Concomitant]
  4. ELAVIL [Concomitant]
  5. SINGULAIR [Concomitant]
  6. ATIVAN [Concomitant]
  7. ZYRTEC [Concomitant]
  8. WESTCORT CREAM [Concomitant]
  9. RESTORIL [Concomitant]
  10. ALBUTEROL [Concomitant]
  11. ZANTAC [Concomitant]
  12. SYMBICORT [Concomitant]
  13. NEXIUM [Concomitant]
  14. SPIRIVA [Concomitant]
  15. GAVISCON [Concomitant]
  16. BENICAR [Concomitant]
  17. VITAMIN D [Concomitant]
  18. ASPIRIN [Concomitant]
  19. DESITIN CREAM [Concomitant]

REACTIONS (1)
  - Dyspnoea [Unknown]
